FAERS Safety Report 6739996-1 (Version None)
Quarter: 2010Q2

REPORT INFORMATION
  Report Type: 
  Country: None (occurrence: None)
  Receive Date: 20100525
  Receipt Date: 20100520
  Transmission Date: 20101027
  Serious: Yes (Hospitalization)
  Sender: FDA-Public Use
  Company Number: SG-BRISTOL-MYERS SQUIBB COMPANY-15115256

PATIENT
  Age: 48 Year
  Sex: Male

DRUGS (14)
  1. PACLITAXEL [Suspect]
     Indication: NON-SMALL CELL LUNG CANCER
     Dosage: DAY 1 OF 21 DAY CYCLE
     Route: 042
     Dates: start: 20100426
  2. CARBOPLATIN [Suspect]
     Indication: NON-SMALL CELL LUNG CANCER
     Dosage: AUC 6 DAY 1 OF 21 DAY CYCLE
     Route: 042
     Dates: start: 20100426
  3. ACETYLSALICYLIC ACID [Concomitant]
     Indication: HYPERTENSION
     Dates: start: 20000401
  4. GLIPIZIDE [Concomitant]
     Indication: HYPERGLYCAEMIA
     Dates: start: 20000401
  5. METFORMIN [Concomitant]
     Indication: HYPERGLYCAEMIA
     Dates: start: 20000401
  6. ENALAPRIL [Concomitant]
     Indication: HYPERTENSION
     Dates: start: 20000401
  7. SIMVASTATIN [Concomitant]
     Indication: HYPERLIPIDAEMIA
     Dates: start: 20000401
  8. PROMETHAZINE W/ CODEINE [Concomitant]
     Indication: COUGH
     Dates: start: 20100301
  9. INSULIN [Concomitant]
     Indication: HYPERGLYCAEMIA
     Dosage: 1DF=6 UNITS
     Dates: start: 20100401
  10. PEGFILGRASTIM [Concomitant]
     Indication: PROPHYLAXIS
     Dates: start: 20100427
  11. DEXAMETHASONE [Concomitant]
     Indication: PREMEDICATION
     Route: 042
     Dates: start: 20100425
  12. RANITIDINE [Concomitant]
     Indication: PREMEDICATION
     Route: 042
     Dates: start: 20100426, end: 20100426
  13. ONDANSETRON [Concomitant]
     Indication: PREMEDICATION
     Route: 042
     Dates: start: 20100426
  14. DIPHENHYDRAMINE [Concomitant]
     Indication: PREMEDICATION
     Route: 042
     Dates: start: 20100426

REACTIONS (1)
  - PANCREATITIS [None]
